FAERS Safety Report 9452720 (Version 2)
Quarter: 2013Q3

REPORT INFORMATION
  Report Type: Report from Study
  Country: BR (occurrence: BR)
  Receive Date: 20130812
  Receipt Date: 20130814
  Transmission Date: 20140515
  Serious: Yes (Other)
  Sender: FDA-Public Use
  Company Number: PHHY2013BR083854

PATIENT
  Sex: Male
  Weight: 57 kg

DRUGS (18)
  1. SIMULECT [Suspect]
     Indication: RENAL TRANSPLANT
     Dosage: 20 MG
     Route: 042
     Dates: start: 20081113
  2. SIMULECT [Suspect]
     Dosage: 20 MG
     Route: 042
     Dates: start: 20081117
  3. MYFORTIC [Suspect]
     Indication: RENAL TRANSPLANT
     Dosage: 1440 MG / DAILY
     Route: 048
     Dates: start: 20081113
  4. CERTICAN [Concomitant]
     Indication: RENAL TRANSPLANT
     Dosage: 1.5 MG / DAILY
     Route: 048
     Dates: start: 20081203, end: 20090401
  5. CERTICAN [Concomitant]
     Dosage: 3 MG / DAILY
     Route: 048
     Dates: start: 20090402, end: 20120709
  6. CERTICAN [Concomitant]
     Dosage: 2 MG/ DAILY
     Route: 048
     Dates: start: 20120710
  7. PREDNISONE [Concomitant]
     Indication: RENAL TRANSPLANT
     Dosage: 30 MG/DAY
     Dates: start: 20081113, end: 20090101
  8. PREDNISONE [Concomitant]
     Dosage: 20 MG/ DAILY
     Route: 048
     Dates: start: 20090102, end: 20090315
  9. PREDNISONE [Concomitant]
     Dosage: 10 MG/ DAILY
     Route: 048
     Dates: start: 20090316
  10. CAPTOPRIL [Concomitant]
     Indication: HYPERTENSION
     Dosage: 150 MG / DAILY
     Route: 048
     Dates: start: 20090105
  11. LOSARTAN [Concomitant]
     Indication: HYPERTENSION
     Dosage: 100 MG / DAILY
     Dates: start: 20090701
  12. ATENOLOL [Concomitant]
     Indication: HYPERTENSION
     Dosage: 100 MG / DAILY
     Route: 048
     Dates: start: 20090105, end: 20090701
  13. CARVEDILOL [Concomitant]
     Indication: HYPERTENSION
     Dosage: 12.5 MG, UNK
     Route: 048
     Dates: start: 20090702
  14. RANITIDINE [Concomitant]
     Indication: GASTRITIS PROPHYLAXIS
     Dosage: 300 MG / DAILY
     Route: 048
     Dates: start: 20090105, end: 20090205
  15. OMEPRAZOLE [Concomitant]
     Indication: GASTRITIS PROPHYLAXIS
     Dosage: 40 MG / DAILY
     Route: 048
     Dates: start: 20090206
  16. BACTRIM FORTE [Concomitant]
     Indication: ANTIBIOTIC PROPHYLAXIS
     Dosage: 160 / 800 MG / DAILY
     Route: 048
     Dates: start: 20081113, end: 20090219
  17. ERYTHROPOIETIN [Concomitant]
     Indication: ANAEMIA
     Dosage: 12.000 U/ WEEK
     Route: 058
     Dates: start: 20081113, end: 20090209
  18. LIPLESS [Concomitant]
     Indication: HYPERLIPIDAEMIA
     Dosage: 100 MG / DAILY
     Route: 048
     Dates: start: 20130131

REACTIONS (4)
  - Nephrolithiasis [Unknown]
  - Pyelocaliectasis [Unknown]
  - Complications of transplanted kidney [Recovered/Resolved]
  - Proteinuria [Unknown]
